FAERS Safety Report 17827717 (Version 1)
Quarter: 2020Q2

REPORT INFORMATION
  Report Type: Spontaneous
  Country: CA (occurrence: CA)
  Receive Date: 20200527
  Receipt Date: 20200527
  Transmission Date: 20200714
  Serious: Yes (Other)
  Sender: FDA-Public Use
  Company Number: CA-ROCHE-2604341

PATIENT
  Sex: Female

DRUGS (1)
  1. SOMATROPIN. [Suspect]
     Active Substance: SOMATROPIN
     Indication: BLOOD GROWTH HORMONE
     Route: 065

REACTIONS (1)
  - Neoplasm recurrence [Recovered/Resolved]
